FAERS Safety Report 16251700 (Version 3)
Quarter: 2021Q4

REPORT INFORMATION
  Report Type: Spontaneous
  Country: IT (occurrence: IT)
  Receive Date: 20190429
  Receipt Date: 20211005
  Transmission Date: 20220303
  Serious: Yes (Hospitalization, Other)
  Sender: FDA-Public Use
  Company Number: None

PATIENT
  Age: 80 Year
  Sex: Male

DRUGS (8)
  1. RAMIPRIL [Suspect]
     Active Substance: RAMIPRIL
     Indication: Hypertension
     Dosage: 2.5 MG, QD
     Route: 048
     Dates: start: 20180101, end: 20181207
  2. RAMIPRIL [Suspect]
     Active Substance: RAMIPRIL
     Dosage: UNK
     Route: 048
  3. BENSERAZIDE HYDROCHLORIDE\LEVODOPA [Suspect]
     Active Substance: BENSERAZIDE HYDROCHLORIDE\LEVODOPA
     Indication: Parkinson^s disease
     Dosage: 375 MG, QD
     Route: 048
     Dates: start: 20180101, end: 20181207
  4. ALLOPURINOL [Concomitant]
     Active Substance: ALLOPURINOL
     Dosage: UNK
     Route: 065
  5. XARENEL [Concomitant]
     Dosage: UNK
     Route: 065
  6. TAMSULOSIN HYDROCHLORIDE [Concomitant]
     Active Substance: TAMSULOSIN HYDROCHLORIDE
     Dosage: UNK
     Route: 065
  7. ASPIRIN [Concomitant]
     Active Substance: ASPIRIN
     Dosage: UNK
     Route: 065
  8. LEUCOVORIN CALCIUM [Concomitant]
     Active Substance: LEUCOVORIN CALCIUM
     Dosage: UNK
     Route: 065

REACTIONS (2)
  - Clonus [Recovered/Resolved]
  - Syncope [Recovered/Resolved]

NARRATIVE: CASE EVENT DATE: 20181207
